FAERS Safety Report 18757752 (Version 1)
Quarter: 2021Q1

REPORT INFORMATION
  Report Type: Spontaneous
  Country: US (occurrence: US)
  Receive Date: 20210119
  Receipt Date: 20210119
  Transmission Date: 20210419
  Serious: Yes (Death, Hospitalization)
  Sender: FDA-Public Use
  Company Number: US-JNJFOC-20210116063

PATIENT
  Age: 76 Year
  Sex: Female

DRUGS (1)
  1. PARACETAMOL/DIPHENHYDRAMINE HCL [Suspect]
     Active Substance: ACETAMINOPHEN\DIPHENHYDRAMINE HYDROCHLORIDE
     Indication: PRODUCT USED FOR UNKNOWN INDICATION
     Dosage: 2 AND 6 TABLETS OF 500 MG ACETAMINOPHEN/DIPHENHYDRAMINE COMBINATION DAILY
     Route: 065

REACTIONS (5)
  - Hallucination, visual [Fatal]
  - Overdose [Fatal]
  - Encephalopathy [Fatal]
  - Renal impairment [Fatal]
  - Hepatic failure [Fatal]
